FAERS Safety Report 6184730-X (Version None)
Quarter: 2009Q2

REPORT INFORMATION
  Report Type: 
  Country: None (occurrence: None)
  Receive Date: 20090508
  Receipt Date: 20090506
  Transmission Date: 20091009
  Serious: Yes (Death, Other)
  Sender: FDA-Public Use
  Company Number: JP-ABBOTT-09P-087-0500877-00

PATIENT
  Age: 84 Year
  Sex: Male

DRUGS (13)
  1. LEUPLIN SR FOR INJECTION 11.25 MG [Suspect]
     Indication: PROSTATE CANCER
     Route: 058
     Dates: start: 20060426, end: 20060726
  2. LEUPLIN SR FOR INJECTION 11.25 MG [Suspect]
     Route: 058
     Dates: start: 20061122, end: 20080115
  3. LEUPLIN SR FOR INJECTION 11.25 MG [Suspect]
     Dates: start: 20060302, end: 20060329
  4. ASPIRIN [Concomitant]
     Indication: MYOCARDIAL INFARCTION
     Route: 048
  5. SIGMART [Concomitant]
     Indication: MYOCARDIAL INFARCTION
     Route: 048
  6. BLOPRESS [Concomitant]
     Indication: HYPERTENSION
     Route: 048
  7. LASIX [Concomitant]
     Indication: HYPERTENSION
     Route: 048
  8. GASTER D [Concomitant]
     Indication: GASTRITIS
     Route: 048
  9. FLUTAMIDE [Concomitant]
     Indication: PROSTATE CANCER
     Route: 048
     Dates: start: 20070314, end: 20080220
  10. MAGNESIUM OXIDE [Concomitant]
     Indication: CONSTIPATION
     Route: 048
     Dates: start: 20070411, end: 20070919
  11. TAMSULOSIN HYDROCHLORIDE [Concomitant]
     Indication: BENIGN PROSTATIC HYPERPLASIA
     Route: 048
     Dates: start: 20071023, end: 20080220
  12. BUP-4 [Concomitant]
     Indication: POLLAKIURIA
     Route: 048
     Dates: start: 20071023, end: 20081105
  13. BESACOLIN [Concomitant]
     Indication: NEUROGENIC BLADDER
     Route: 048
     Dates: start: 20071120, end: 20080220

REACTIONS (3)
  - METASTASIS [None]
  - PROSTATE CANCER [None]
  - PROSTATIC SPECIFIC ANTIGEN INCREASED [None]
